FAERS Safety Report 7198310-0 (Version None)
Quarter: 2010Q4

REPORT INFORMATION
  Report Type: 
  Country: None (occurrence: None)
  Receive Date: 20101227
  Receipt Date: 20101214
  Transmission Date: 20110411
  Serious: Yes (Disabling, Other)
  Sender: FDA-Public Use
  Company Number: PHHY2010JP47224

PATIENT
  Sex: Female
  Weight: 44 kg

DRUGS (8)
  1. DIOVAN HCT [Suspect]
     Indication: HYPERTENSION
     Dosage: 1 DF (80/6.25 MG) DAILY
     Route: 048
     Dates: start: 20090710, end: 20100319
  2. VANARL [Suspect]
     Dosage: 150 MG
     Route: 048
     Dates: start: 20100205, end: 20100319
  3. PURSENNID [Concomitant]
     Dosage: 24 MG
     Route: 048
     Dates: start: 20100212, end: 20100305
  4. CONIEL [Concomitant]
     Indication: HYPERTENSION
     Dosage: 4 MG
     Route: 048
     Dates: start: 20090710, end: 20100319
  5. ASPIRIN [Concomitant]
     Dosage: 100 MG
     Route: 048
     Dates: start: 20090710, end: 20100319
  6. CARTOL [Concomitant]
     Dosage: 0.5 UG
     Route: 048
     Dates: start: 20090710, end: 20100319
  7. MEVALOTIN [Concomitant]
     Dosage: 5 MG
     Route: 048
     Dates: start: 20090710, end: 20100319
  8. MAGLAX [Concomitant]
     Dosage: 1000 MG
     Route: 048
     Dates: start: 20100212, end: 20100319

REACTIONS (7)
  - AGNOSIA [None]
  - APHASIA [None]
  - CEREBRAL HAEMORRHAGE [None]
  - CONSTIPATION [None]
  - HYPOKALAEMIA [None]
  - HYPOTENSION [None]
  - SPINAL COMPRESSION FRACTURE [None]
